FAERS Safety Report 8996701 (Version 1)
Quarter: 2012Q4

REPORT INFORMATION
  Report Type: Spontaneous
  Country: US (occurrence: None)
  Receive Date: 20121228
  Receipt Date: 20121228
  Transmission Date: 20130627
  Serious: No
  Sender: FDA-Public Use
  Company Number: None

PATIENT
  Sex: Male

DRUGS (6)
  1. RISPERDAL [Suspect]
     Indication: ANGER
     Dosage: Risperdal 1mg DAW 1 qhs #30
  2. RISPERDAL [Suspect]
     Indication: ASPERGER^S DISORDER
     Dosage: Risperdal 1mg DAW 1 qhs #30
  3. RISPERDAL [Suspect]
     Indication: ADHD
     Dosage: Risperdal 1mg DAW 1 qhs #30
  4. RISPERDAL [Suspect]
     Indication: PERVASIVE DEVELOPMENTAL DISORDER
     Dosage: Risperdal 1mg DAW 1 qhs #30
  5. RISPERDAL [Suspect]
     Indication: BIPOLAR DISORDER
     Dosage: Risperdal 1mg DAW 1 qhs #30
  6. RISPERDAL [Suspect]
     Indication: IRRITABLE
     Dosage: Risperdal 1mg DAW 1 qhs #30

REACTIONS (1)
  - Drug ineffective [None]
